FAERS Safety Report 20918827 (Version 1)
Quarter: 2022Q2

REPORT INFORMATION
  Report Type: Spontaneous
  Country: US (occurrence: None)
  Receive Date: 20220605
  Receipt Date: 20220605
  Transmission Date: 20220721
  Serious: Yes (Other)
  Sender: FDA-Public Use
  Company Number: None

PATIENT
  Age: 40 Year
  Sex: Female
  Weight: 63 kg

DRUGS (15)
  1. EVUSHELD [Suspect]
     Active Substance: CILGAVIMAB\TIXAGEVIMAB
     Indication: COVID-19 prophylaxis
     Dosage: OTHER FREQUENCY : ONE TIME DOSE;?
     Route: 030
     Dates: start: 20220531, end: 20220531
  2. LAMICTAL [Concomitant]
     Active Substance: LAMOTRIGINE
  3. WELLBUTRIN [Concomitant]
     Active Substance: BUPROPION HYDROCHLORIDE
  4. LEXAPRO [Concomitant]
     Active Substance: ESCITALOPRAM OXALATE
  5. MODAFINIL [Concomitant]
     Active Substance: MODAFINIL
  6. TRILEPTAL [Concomitant]
     Active Substance: OXCARBAZEPINE
  7. SODIUM CHLORIDE [Concomitant]
     Active Substance: SODIUM CHLORIDE
  8. XANAX [Concomitant]
     Active Substance: ALPRAZOLAM
  9. gabapentin prn [Concomitant]
  10. flexeril prn [Concomitant]
  11. NURTEC ODT [Concomitant]
     Active Substance: RIMEGEPANT SULFATE
  12. ocrevus infusion q6 months [Concomitant]
  13. METAFOLIN [Concomitant]
  14. IRON\VITAMINS [Concomitant]
     Active Substance: IRON\VITAMINS
  15. EXCEDRIN MIGRAINE [Concomitant]
     Active Substance: ACETAMINOPHEN\ASPIRIN\CAFFEINE

REACTIONS (3)
  - Headache [None]
  - Chest discomfort [None]
  - Delirium [None]

NARRATIVE: CASE EVENT DATE: 20220531
